FAERS Safety Report 4963039-3 (Version None)
Quarter: 2006Q2

REPORT INFORMATION
  Report Type: 
  Country: None (occurrence: None)
  Receive Date: 20060405
  Receipt Date: 20060324
  Transmission Date: 20061013
  Serious: Yes (Other)
  Sender: FDA-Public Use
  Company Number: US-JNJFOC-20060200244

PATIENT
  Sex: Female

DRUGS (3)
  1. NORGESTIMATE AND ETHINYL ESTRADIOL [Interacting]
     Indication: ACNE
     Route: 048
     Dates: start: 20051215
  2. CLOZAPINE [Suspect]
     Indication: SCHIZOPHRENIA
  3. DOXYCYCLINE [Concomitant]
     Dates: start: 20040101

REACTIONS (7)
  - AGITATION [None]
  - AKATHISIA [None]
  - ANTIPSYCHOTIC DRUG LEVEL INCREASED [None]
  - DELUSION [None]
  - DROOLING [None]
  - DRUG INTERACTION [None]
  - HYPERKINESIA [None]
